FAERS Safety Report 8778192 (Version 1)
Quarter: 2012Q4

REPORT INFORMATION
  Report Type: 
  Country: CN (occurrence: CN)
  Receive Date: 20120912
  Receipt Date: 20120912
  Transmission Date: 20130627
  Serious: Yes (Other)
  Sender: FDA-Public Use
  Company Number: CN-BRISTOL-MYERS SQUIBB COMPANY-16888851

PATIENT
  Age: 80 Year
  Sex: Female
  Weight: 60 kg

DRUGS (2)
  1. METFORMIN HCL TABS 500MG [Suspect]
     Indication: DIABETES MELLITUS
     Route: 048
     Dates: start: 20101120, end: 20101120
  2. NATEGLINIDE [Suspect]

REACTIONS (1)
  - Face oedema [Recovering/Resolving]
